FAERS Safety Report 10192216 (Version 1)
Quarter: 2014Q2

REPORT INFORMATION
  Report Type: Spontaneous
  Country: US (occurrence: US)
  Receive Date: 20140523
  Receipt Date: 20140523
  Transmission Date: 20141212
  Serious: No
  Sender: FDA-Public Use
  Company Number: US-AMARIN PHARMA, INC.-2014AMR000031

PATIENT
  Sex: Male
  Weight: 70.37 kg

DRUGS (7)
  1. VASCEPA [Suspect]
     Indication: BLOOD TRIGLYCERIDES INCREASED
     Dosage: ONE CAPSULE DAILY
     Dates: start: 201308, end: 201311
  2. VASCEPA [Suspect]
     Indication: BLOOD CHOLESTEROL
  3. HUMIRA [Concomitant]
     Indication: PSORIASIS
     Route: 058
  4. CRESTOR [Concomitant]
     Indication: BLOOD CHOLESTEROL
     Route: 048
  5. METHOTREXATE [Concomitant]
     Indication: PRODUCT USED FOR UNKNOWN INDICATION
     Dosage: FIVE 2.5 MG TABLETS ONCE WEEKLY
     Route: 048
  6. METOPROLOL [Concomitant]
     Indication: HYPERTENSION
     Route: 048
  7. FOLIC ACID [Concomitant]
     Indication: PRODUCT USED FOR UNKNOWN INDICATION
     Route: 048

REACTIONS (5)
  - Abdominal pain upper [Unknown]
  - Gastrooesophageal reflux disease [Recovered/Resolved]
  - Hepatic enzyme increased [Recovered/Resolved]
  - Intentional product misuse [Unknown]
  - Arthralgia [Recovered/Resolved]
